FAERS Safety Report 5726581-3 (Version None)
Quarter: 2008Q2

REPORT INFORMATION
  Report Type: 
  Country: None (occurrence: None)
  Receive Date: 20080502
  Receipt Date: 20080425
  Transmission Date: 20081010
  Serious: Yes (Other)
  Sender: FDA-Public Use
  Company Number: US-GENENTECH-257308

PATIENT
  Sex: Female
  Weight: 89.342 kg

DRUGS (4)
  1. HERCEPTIN [Suspect]
     Indication: BREAST CANCER METASTATIC
     Dosage: 312 MG, SINGLE
     Route: 042
     Dates: start: 20070731
  2. HERCEPTIN [Suspect]
     Dosage: 156 MG, 1/WEEK
     Route: 042
  3. DOCETAXEL [Concomitant]
     Indication: BREAST CANCER
  4. CARBOPLATIN [Concomitant]
     Indication: BREAST CANCER

REACTIONS (1)
  - THROMBOCYTOPENIA [None]
